FAERS Safety Report 8812755 (Version 1)
Quarter: 2012Q4

REPORT INFORMATION
  Report Type: 
  Country: US (occurrence: US)
  Receive Date: 20120927
  Receipt Date: 20120927
  Transmission Date: 20130627
  Serious: Yes (Hospitalization, Other)
  Sender: FDA-Public Use
  Company Number: US-ROCHE-1127985

PATIENT
  Sex: Female

DRUGS (3)
  1. AVASTIN [Suspect]
     Indication: LUNG NEOPLASM MALIGNANT
     Route: 065
     Dates: start: 20060918
  2. GEMZAR [Concomitant]
     Route: 065
     Dates: start: 20060918
  3. TAXOTERE [Concomitant]

REACTIONS (9)
  - Hypomagnesaemia [Unknown]
  - Hypocalcaemia [Unknown]
  - Lung neoplasm [Unknown]
  - Asthenia [Unknown]
  - Dermatitis exfoliative [Unknown]
  - Lymphadenopathy mediastinal [Unknown]
  - Pneumonia [Unknown]
  - Drug intolerance [Unknown]
  - Hypertension [Unknown]
